FAERS Safety Report 8191275-4 (Version None)
Quarter: 2012Q1

REPORT INFORMATION
  Report Type: 
  Country: None (occurrence: None)
  Receive Date: 20120307
  Receipt Date: 20120302
  Transmission Date: 20120608
  Serious: Yes (Other)
  Sender: FDA-Public Use
  Company Number: US-GILEAD-2012-0051728

PATIENT
  Sex: Male

DRUGS (3)
  1. TRUVADA [Suspect]
     Indication: HIV INFECTION
  2. ATRIPLA [Suspect]
     Indication: HIV INFECTION
     Dosage: UNK
     Dates: start: 20110901
  3. SUSTIVA [Suspect]
     Dosage: UNK
     Dates: end: 20111226

REACTIONS (4)
  - SUICIDAL IDEATION [None]
  - SKIN TIGHTNESS [None]
  - ERYTHEMA [None]
  - PRURITUS [None]
